FAERS Safety Report 7326413-6 (Version None)
Quarter: 2011Q1

REPORT INFORMATION
  Report Type: 
  Country: None (occurrence: None)
  Receive Date: 20110302
  Receipt Date: 20110218
  Transmission Date: 20110831
  Serious: Yes (Other)
  Sender: FDA-Public Use
  Company Number: US-RB-021600-11

PATIENT
  Age: 16 Year
  Sex: Female
  Weight: 63 kg

DRUGS (3)
  1. DELSYM [Suspect]
     Dosage: TAKEN AT 8.30PM ON 15-FEB-2011
     Route: 048
  2. MOTRIM [Concomitant]
  3. DELSYM [Suspect]
     Indication: NASOPHARYNGITIS
     Dosage: PATIENT TOOK ONE DOSE ON 14-FEB-2011
     Route: 048

REACTIONS (3)
  - TONGUE INJURY [None]
  - UNRESPONSIVE TO STIMULI [None]
  - CONVULSION [None]
